FAERS Safety Report 10368994 (Version 7)
Quarter: 2015Q3

REPORT INFORMATION
  Report Type: Report from Study
  Country: US (occurrence: US)
  Receive Date: 20140807
  Receipt Date: 20150923
  Transmission Date: 20151125
  Serious: Yes (Hospitalization, Other)
  Sender: FDA-Public Use
  Company Number: US-SA-2014SA021726

PATIENT
  Age: 65 Year
  Sex: Female

DRUGS (1)
  1. AUBAGIO [Suspect]
     Active Substance: TERIFLUNOMIDE
     Indication: MULTIPLE SCLEROSIS
     Route: 048
     Dates: start: 20140213

REACTIONS (26)
  - Malaise [Unknown]
  - Tremor [Unknown]
  - Sleep disorder [Unknown]
  - Diarrhoea [Unknown]
  - Weight decreased [Unknown]
  - Frequent bowel movements [Not Recovered/Not Resolved]
  - Multiple sclerosis relapse [Unknown]
  - Nasal congestion [Unknown]
  - Gastric ulcer [Not Recovered/Not Resolved]
  - Blood potassium decreased [Unknown]
  - Abdominal pain [Unknown]
  - Platelet count decreased [Unknown]
  - Dyspepsia [Unknown]
  - Asthenia [Unknown]
  - Nervousness [Unknown]
  - Diarrhoea [Not Recovered/Not Resolved]
  - Paraesthesia [Unknown]
  - Nasopharyngitis [Unknown]
  - Carotid artery thrombosis [Unknown]
  - Vision blurred [Unknown]
  - Headache [Unknown]
  - Alopecia [Unknown]
  - Nausea [Unknown]
  - Multiple sclerosis relapse [Unknown]
  - White blood cell count decreased [Unknown]
  - Intervertebral disc protrusion [Unknown]

NARRATIVE: CASE EVENT DATE: 2014
